FAERS Safety Report 6213758-6 (Version None)
Quarter: 2009Q2

REPORT INFORMATION
  Report Type: 
  Country: None (occurrence: None)
  Receive Date: 20090602
  Receipt Date: 20090528
  Transmission Date: 20091009
  Serious: Yes (Other)
  Sender: FDA-Public Use
  Company Number: A0782907A

PATIENT
  Age: 61 Year
  Sex: Female

DRUGS (1)
  1. UREA PEROXIDE [Suspect]
     Dosage: AURAL

REACTIONS (7)
  - DEAFNESS [None]
  - EAR DISCOMFORT [None]
  - EAR PAIN [None]
  - NERVOUSNESS [None]
  - OTORRHOEA [None]
  - TREATMENT NONCOMPLIANCE [None]
  - TYMPANIC MEMBRANE PERFORATION [None]
